FAERS Safety Report 10469328 (Version 1)
Quarter: 2014Q3

REPORT INFORMATION
  Report Type: Spontaneous
  Country: US (occurrence: None)
  Receive Date: 20140922
  Receipt Date: 20140922
  Transmission Date: 20150326
  Serious: Yes (Other)
  Sender: FDA-Public Use
  Company Number: None

PATIENT
  Age: 77 Year
  Sex: Female
  Weight: 113.4 kg

DRUGS (1)
  1. ELIQUIS [Suspect]
     Active Substance: APIXABAN
     Indication: ATRIAL FIBRILLATION
     Dosage: 1 PILL TWICE DAILY TAKEN BY MOUTH
     Route: 048
     Dates: start: 20140701, end: 20140814

REACTIONS (7)
  - Dysuria [None]
  - Hair texture abnormal [None]
  - Gait disturbance [None]
  - Fluid retention [None]
  - Peripheral swelling [None]
  - Arthralgia [None]
  - Dry mouth [None]

NARRATIVE: CASE EVENT DATE: 20140701
